FAERS Safety Report 19995980 (Version 9)
Quarter: 2022Q2

REPORT INFORMATION
  Report Type: Spontaneous
  Country: US (occurrence: US)
  Receive Date: 20211026
  Receipt Date: 20220425
  Transmission Date: 20220721
  Serious: Yes (Life-Threatening, Hospitalization, Disabling, Other)
  Sender: FDA-Public Use
  Company Number: US-PFIZER INC-202101427395

PATIENT
  Age: 59 Year
  Sex: Male

DRUGS (2)
  1. CHANTIX [Suspect]
     Active Substance: VARENICLINE TARTRATE
     Dosage: UNK
  2. CHANTIX [Suspect]
     Active Substance: VARENICLINE TARTRATE
     Dosage: UNK

REACTIONS (34)
  - Deep vein thrombosis [Unknown]
  - Pulmonary embolism [Unknown]
  - Depressed level of consciousness [Unknown]
  - Poisoning [Unknown]
  - Surgery [Unknown]
  - Delirium [Unknown]
  - Altered state of consciousness [Unknown]
  - Haematochezia [Unknown]
  - Brain injury [Unknown]
  - Accident [Unknown]
  - Face injury [Unknown]
  - Throat tightness [Unknown]
  - Dyspnoea [Unknown]
  - Paranoia [Unknown]
  - Emotional disorder [Unknown]
  - Palpitations [Unknown]
  - Chest discomfort [Unknown]
  - Visual impairment [Unknown]
  - Tremor [Unknown]
  - Skin discolouration [Unknown]
  - Dysuria [Unknown]
  - Blood urine present [Unknown]
  - Feeling drunk [Unknown]
  - Balance disorder [Unknown]
  - Fall [Unknown]
  - Contusion [Unknown]
  - Poor quality sleep [Unknown]
  - Restlessness [Unknown]
  - Nightmare [Unknown]
  - Abnormal dreams [Unknown]
  - Vomiting [Unknown]
  - Limb discomfort [Unknown]
  - Pain [Unknown]
  - Recalled product administered [Unknown]
